FAERS Safety Report 5475126-4 (Version None)
Quarter: 2007Q4

REPORT INFORMATION
  Report Type: 
  Country: None (occurrence: None)
  Receive Date: 20071002
  Receipt Date: 20071001
  Transmission Date: 20080405
  Serious: Yes (Hospitalization)
  Sender: FDA-Public Use
  Company Number: BR-BOEHRINGER INGELHEIM PHARMACEUTICALS, INC.-2007-BP-21068BR

PATIENT

DRUGS (2)
  1. MICARDIS [Suspect]
     Route: 048
  2. AVANDIA [Concomitant]
     Indication: HYPERTENSION

REACTIONS (1)
  - SKIN REACTION [None]
